FAERS Safety Report 5866767-0 (Version None)
Quarter: 2008Q3

REPORT INFORMATION
  Report Type: 
  Country: None (occurrence: None)
  Receive Date: 20080902
  Receipt Date: 20050221
  Transmission Date: 20090109
  Serious: Yes (Other)
  Sender: FDA-Public Use
  Company Number: US-BAYER-200830668NA

PATIENT
  Sex: Female

DRUGS (1)
  1. AVELOX [Suspect]
     Indication: DRUG USE FOR UNKNOWN INDICATION
     Dosage: UNIT DOSE: 400 MG
     Route: 048

REACTIONS (11)
  - ARTHRALGIA [None]
  - ASTHENIA [None]
  - EYE DISORDER [None]
  - HEADACHE [None]
  - HYPERSENSITIVITY [None]
  - NECK PAIN [None]
  - NIGHT SWEATS [None]
  - OCULAR HYPERAEMIA [None]
  - PAIN IN JAW [None]
  - PYREXIA [None]
  - RASH MACULAR [None]
